FAERS Safety Report 6715808-7 (Version None)
Quarter: 2010Q2

REPORT INFORMATION
  Report Type: 
  Country: None (occurrence: None)
  Receive Date: 20100506
  Receipt Date: 20100506
  Transmission Date: 20101027
  Serious: No
  Sender: FDA-Public Use
  Company Number: None

PATIENT
  Sex: Female
  Weight: 70 kg

DRUGS (2)
  1. HERCEPTIN [Suspect]
     Dosage: 140 MG
     Dates: end: 20100205
  2. TAXOL [Suspect]
     Dosage: 136 MG
     Dates: end: 20100205

REACTIONS (1)
  - EJECTION FRACTION DECREASED [None]
